FAERS Safety Report 6713509-2 (Version None)
Quarter: 2010Q2

REPORT INFORMATION
  Report Type: 
  Country: None (occurrence: None)
  Receive Date: 20100504
  Receipt Date: 20100422
  Transmission Date: 20101027
  Serious: Yes (Other)
  Sender: FDA-Public Use
  Company Number: 167-20484-09071632

PATIENT
  Age: 21 Year
  Sex: Female
  Weight: 115 kg

DRUGS (15)
  1. INNOHEP [Suspect]
     Indication: THROMBOSIS PROPHYLAXIS
     Dosage: (1 IN 1 D, SUBCUTANEOUS), 10000 IU (2 IN1 D, SUBCUTANEOUS, 4500 IU (2 IN1 D) SUBCUTANEOUS, 7000 IU (
     Route: 058
     Dates: start: 20070920, end: 20071002
  2. INNOHEP [Suspect]
     Indication: THROMBOSIS PROPHYLAXIS
     Dosage: (1 IN 1 D, SUBCUTANEOUS), 10000 IU (2 IN1 D, SUBCUTANEOUS, 4500 IU (2 IN1 D) SUBCUTANEOUS, 7000 IU (
     Route: 058
     Dates: start: 20071003, end: 20080312
  3. INNOHEP [Suspect]
     Indication: THROMBOSIS PROPHYLAXIS
     Dosage: (1 IN 1 D, SUBCUTANEOUS), 10000 IU (2 IN1 D, SUBCUTANEOUS, 4500 IU (2 IN1 D) SUBCUTANEOUS, 7000 IU (
     Route: 058
     Dates: start: 20080314, end: 20080315
  4. INNOHEP [Suspect]
     Indication: THROMBOSIS PROPHYLAXIS
     Dosage: (1 IN 1 D, SUBCUTANEOUS), 10000 IU (2 IN1 D, SUBCUTANEOUS, 4500 IU (2 IN1 D) SUBCUTANEOUS, 7000 IU (
     Route: 058
     Dates: start: 20090316, end: 20090316
  5. INNOHEP [Suspect]
     Indication: THROMBOSIS PROPHYLAXIS
     Dosage: (1 IN 1 D, SUBCUTANEOUS), 10000 IU (2 IN1 D, SUBCUTANEOUS, 4500 IU (2 IN1 D) SUBCUTANEOUS, 7000 IU (
     Route: 058
     Dates: start: 20090317
  6. FOLIC ACID [Concomitant]
  7. VITAMIN B12 [Concomitant]
  8. FERROUS [Concomitant]
  9. ACETAMINOPHEN [Concomitant]
  10. CODEINE PHOSPHATE (CODEINE PHOPHATE) [Concomitant]
  11. BENZYLPENICILLIN (BENZYLPENICILLIN) [Concomitant]
  12. MEPERIDINE HCL [Concomitant]
  13. PHENERGAN (PROMETHAZINE) [Concomitant]
  14. RANITIDINE [Concomitant]
  15. SYNTOCINON (COXYTOCIN) (INJECTION FOR INFUSION) [Concomitant]

REACTIONS (4)
  - ANAEMIA FOLATE DEFICIENCY [None]
  - DRUG EXPOSURE DURING PREGNANCY [None]
  - POST PROCEDURAL HAEMORRHAGE [None]
  - PREMATURE LABOUR [None]
